FAERS Safety Report 11952864 (Version 1)
Quarter: 2016Q1

REPORT INFORMATION
  Report Type: Spontaneous
  Country: US (occurrence: US)
  Receive Date: 20160126
  Receipt Date: 20160126
  Transmission Date: 20160526
  Serious: No
  Sender: FDA-Public Use
  Company Number: US-BAUSCH-BL-2015-026204

PATIENT
  Age: 48 Year
  Sex: Female
  Weight: 59.02 kg

DRUGS (2)
  1. ALAWAY [Suspect]
     Active Substance: KETOTIFEN FUMARATE
     Indication: HYPERSENSITIVITY
     Route: 047
     Dates: start: 201509
  2. ALAWAY [Suspect]
     Active Substance: KETOTIFEN FUMARATE
     Indication: DERMATITIS

REACTIONS (1)
  - Eye irritation [Recovered/Resolved]
